FAERS Safety Report 9506811 (Version 1)
Quarter: 2013Q3

REPORT INFORMATION
  Report Type: Spontaneous
  Country: AR (occurrence: AR)
  Receive Date: 20130909
  Receipt Date: 20130909
  Transmission Date: 20140515
  Serious: Yes (Hospitalization)
  Sender: FDA-Public Use
  Company Number: AR-BIOGENIDEC-2013BI084624

PATIENT
  Age: 57 Year
  Sex: Male

DRUGS (6)
  1. AVONEX [Suspect]
     Indication: MULTIPLE SCLEROSIS
     Route: 030
     Dates: start: 200907, end: 201308
  2. AVONEX [Suspect]
     Indication: MULTIPLE SCLEROSIS
     Route: 030
     Dates: start: 201308, end: 201308
  3. CLONAZEPAM [Concomitant]
  4. RANITIDINE [Concomitant]
  5. IBUPROFEN 400 [Concomitant]
  6. ASPIRIN [Concomitant]

REACTIONS (5)
  - Nephrolithiasis [Recovered/Resolved]
  - Anaemia [Not Recovered/Not Resolved]
  - Multiple sclerosis [Unknown]
  - General symptom [Unknown]
  - Depressed mood [Unknown]
